FAERS Safety Report 24094444 (Version 1)
Quarter: 2024Q3

REPORT INFORMATION
  Report Type: Spontaneous
  Country: US (occurrence: US)
  Receive Date: 20240716
  Receipt Date: 20240716
  Transmission Date: 20241017
  Serious: Yes (Other)
  Sender: DR REDDYS
  Company Number: US-DRL-USA-LIT/USA/24/0010269

PATIENT
  Age: 58 Year
  Sex: Female

DRUGS (9)
  1. CYCLOSPORINE [Suspect]
     Active Substance: CYCLOSPORINE
     Indication: Lichen planus
  2. RITUXIMAB [Concomitant]
     Active Substance: RITUXIMAB
     Indication: Lichen planus
  3. PREDNISONE [Concomitant]
     Active Substance: PREDNISONE
     Indication: Lichen planus
  4. MYCOPHENOLATE MOFETIL [Concomitant]
     Active Substance: MYCOPHENOLATE MOFETIL
     Indication: Lichen planus
  5. HYDROXYCHLOROQUINE [Concomitant]
     Active Substance: HYDROXYCHLOROQUINE
     Indication: Lichen planus
  6. METHOTREXATE [Concomitant]
     Active Substance: METHOTREXATE
     Indication: Lichen planus
  7. HUMAN IMMUNOGLOBULIN G [Concomitant]
     Active Substance: HUMAN IMMUNOGLOBULIN G
     Indication: Lichen planus
     Route: 042
  8. TACROLIMUS [Concomitant]
     Active Substance: TACROLIMUS
     Indication: Lichen planus
     Route: 061
  9. NALTREXONE [Concomitant]
     Active Substance: NALTREXONE
     Indication: Lichen planus
     Route: 042

REACTIONS (1)
  - Drug ineffective for unapproved indication [Unknown]
